FAERS Safety Report 5635959-8 (Version None)
Quarter: 2008Q1

REPORT INFORMATION
  Report Type: 
  Country: None (occurrence: None)
  Receive Date: 20080224
  Receipt Date: 20080220
  Transmission Date: 20080703
  Serious: Yes (Life-Threatening, Hospitalization, Other)
  Sender: FDA-Public Use
  Company Number: PHHO2008DE02528

PATIENT
  Age: 66 Year
  Sex: Male
  Weight: 92 kg

DRUGS (4)
  1. IMATINIB [Suspect]
     Indication: GASTROINTESTINAL STROMAL TUMOUR
     Dosage: 400 MG, QD
     Route: 048
     Dates: start: 20070125
  2. NORVASC [Concomitant]
     Dosage: 5 MG, UNK
     Route: 048
     Dates: start: 20060509
  3. SIMVASTATIN [Concomitant]
     Dosage: 10 MG, UNK
     Route: 048
     Dates: start: 20060509
  4. CORDAREX [Suspect]
     Route: 048
     Dates: start: 20060509

REACTIONS (4)
  - DRUG INTERACTION [None]
  - EYELID OEDEMA [None]
  - LIP SWELLING [None]
  - SWOLLEN TONGUE [None]
